FAERS Safety Report 9789323 (Version 1)
Quarter: 2013Q4

REPORT INFORMATION
  Report Type: Spontaneous
  Country: NE (occurrence: NE)
  Receive Date: 20131231
  Receipt Date: 20131231
  Transmission Date: 20140711
  Serious: Yes (Other)
  Sender: FDA-Public Use
  Company Number: NE-ACTAVIS-2013-23874

PATIENT
  Age: 25 Year
  Sex: 0

DRUGS (1)
  1. TRAMADOL (UNKNOWN) [Suspect]
     Indication: DRUG ABUSE
     Dosage: 720 MG, UNK
     Route: 048

REACTIONS (4)
  - Convulsion [Unknown]
  - Drug dependence [Unknown]
  - Drug abuse [Unknown]
  - Food interaction [Unknown]
